FAERS Safety Report 8370274-3 (Version None)
Quarter: 2012Q2

REPORT INFORMATION
  Report Type: 
  Country: None (occurrence: None)
  Receive Date: 20120518
  Receipt Date: 20110421
  Transmission Date: 20120825
  Serious: No
  Sender: FDA-Public Use
  Company Number: US-ASTRAZENECA-2011SE26334

PATIENT
  Sex: Female

DRUGS (4)
  1. CENTRAL NERVOUS SYSTEM [Concomitant]
     Indication: ANXIETY
  2. CHOLESTEROL- AND TRIGLYCERIDE REDUCERS [Concomitant]
  3. PRILOSEC OTC [Suspect]
     Route: 048
     Dates: start: 20110412
  4. UNSPECIFIED NASAL SPRAY [Concomitant]

REACTIONS (2)
  - BLISTER [None]
  - RASH ERYTHEMATOUS [None]
